FAERS Safety Report 18797713 (Version 1)
Quarter: 2021Q1

REPORT INFORMATION
  Report Type: Other
  Country: CA (occurrence: CA)
  Receive Date: 20210128
  Receipt Date: 20210128
  Transmission Date: 20210419
  Serious: Yes (Other)
  Sender: FDA-Public Use
  Company Number: CA-APOTEX-2021AP001604

PATIENT
  Age: 67 Year
  Sex: Female

DRUGS (1)
  1. RISEDRONATE [Suspect]
     Active Substance: RISEDRONATE SODIUM
     Indication: BONE DISORDER
     Dosage: 35 MILLIGRAM, Q.WK.
     Route: 065

REACTIONS (5)
  - Vision blurred [Unknown]
  - Headache [Unknown]
  - Myocardial infarction [Unknown]
  - Neck pain [Unknown]
  - Pain in jaw [Unknown]
